FAERS Safety Report 11772299 (Version 4)
Quarter: 2015Q4

REPORT INFORMATION
  Report Type: Spontaneous
  Country: ES (occurrence: ES)
  Receive Date: 20151124
  Receipt Date: 20151222
  Transmission Date: 20160304
  Serious: Yes (Hospitalization, Other)
  Sender: FDA-Public Use
  Company Number: ES-ABBVIE-15P-144-1506056-00

PATIENT
  Age: 48 Year
  Sex: Female

DRUGS (2)
  1. DIVALPROEX SODIUM. [Suspect]
     Active Substance: DIVALPROEX SODIUM
     Indication: DEPRESSED LEVEL OF CONSCIOUSNESS
     Route: 065
  2. OLANZAPINE. [Suspect]
     Active Substance: OLANZAPINE
     Indication: PRODUCT USED FOR UNKNOWN INDICATION
     Route: 065

REACTIONS (12)
  - Toxicity to various agents [Recovered/Resolved]
  - Blood lactic acid increased [Recovered/Resolved]
  - Depressed level of consciousness [Recovered/Resolved]
  - Hypokalaemia [Recovered/Resolved]
  - Laboratory test abnormal [Recovered/Resolved]
  - Hypocalcaemia [Recovered/Resolved]
  - Somnolence [Recovered/Resolved]
  - Dysarthria [Recovered/Resolved]
  - Thrombocytopenia [Recovered/Resolved]
  - Hypernatraemia [Recovered/Resolved]
  - Suicide attempt [Unknown]
  - Hyperammonaemia [Recovered/Resolved]
